FAERS Safety Report 23248972 (Version 1)
Quarter: 2023Q4

REPORT INFORMATION
  Report Type: Spontaneous
  Country: GB (occurrence: GB)
  Receive Date: 20231201
  Receipt Date: 20231201
  Transmission Date: 20240110
  Serious: Yes (Death, Hospitalization, Other)
  Sender: FDA-Public Use
  Company Number: GB-RECKITT BENCKISER HEALTHCARE INT LIMITED-RB-135116-2023

PATIENT
  Age: 4 Year
  Sex: Male

DRUGS (2)
  1. IBUPROFEN [Suspect]
     Active Substance: IBUPROFEN
     Indication: Cough
     Dosage: UNK
     Route: 065
  2. ACETAMINOPHEN [Suspect]
     Active Substance: ACETAMINOPHEN
     Indication: Pyrexia
     Dosage: UNK
     Route: 065

REACTIONS (12)
  - Sepsis [Fatal]
  - Condition aggravated [Fatal]
  - Body temperature [Fatal]
  - Somnolence [Fatal]
  - Chills [Fatal]
  - Decreased appetite [Fatal]
  - Pyrexia [Fatal]
  - Abdominal pain upper [Fatal]
  - Dyspnoea [Fatal]
  - Vomiting [Fatal]
  - Cough [Fatal]
  - Drug ineffective [Fatal]

NARRATIVE: CASE EVENT DATE: 20230101
